FAERS Safety Report 21402013 (Version 1)
Quarter: 2022Q4

REPORT INFORMATION
  Report Type: Spontaneous
  Country: CA (occurrence: CA)
  Receive Date: 20221003
  Receipt Date: 20221003
  Transmission Date: 20230113
  Serious: Yes (Hospitalization)
  Sender: FDA-Public Use
  Company Number: None

PATIENT
  Age: 59 Year
  Sex: Male

DRUGS (13)
  1. CARBOPLATIN [Suspect]
     Active Substance: CARBOPLATIN
     Indication: Product used for unknown indication
     Dosage: 1 EVERY 2 DAYS
     Route: 042
  2. ETOPOSIDE [Suspect]
     Active Substance: ETOPOSIDE
     Indication: Product used for unknown indication
     Dosage: 1 EVERY 2 DAYS
     Route: 065
  3. BISACODYL [Concomitant]
     Active Substance: BISACODYL
     Route: 065
  4. DULOXETINE [Concomitant]
     Active Substance: DULOXETINE
     Route: 065
  5. GABAPENTIN [Concomitant]
     Active Substance: GABAPENTIN
  6. LACTULOSE [Concomitant]
     Active Substance: LACTULOSE
     Route: 048
  7. MORPHINE [Concomitant]
     Active Substance: MORPHINE
  8. OLANZAPINE [Concomitant]
     Active Substance: OLANZAPINE
  9. POLYETHYLENE GLYCOL [Concomitant]
     Active Substance: POLYETHYLENE GLYCOL
  10. POTASSIUM CHLORIDE [Concomitant]
     Active Substance: POTASSIUM CHLORIDE
  11. TAMSULOSIN [Concomitant]
     Active Substance: TAMSULOSIN
  12. THIAMINE [Concomitant]
     Active Substance: THIAMINE
  13. TINZAPARIN [Concomitant]
     Active Substance: TINZAPARIN

REACTIONS (3)
  - Hypotension [Unknown]
  - Malaise [Unknown]
  - Peripheral swelling [Unknown]
